FAERS Safety Report 9649419 (Version 4)
Quarter: 2014Q1

REPORT INFORMATION
  Report Type: Spontaneous
  Country: US (occurrence: US)
  Receive Date: 20131028
  Receipt Date: 20140225
  Transmission Date: 20141002
  Serious: Yes (Hospitalization, Other)
  Sender: FDA-Public Use
  Company Number: US-PFIZER INC-2006071654

PATIENT
  Age: 47 Year
  Sex: Female

DRUGS (1)
  1. LIPITOR [Suspect]
     Indication: BLOOD CHOLESTEROL INCREASED
     Dosage: 10 MG, UNK
     Dates: start: 1996, end: 2005

REACTIONS (13)
  - Myasthenia gravis [Not Recovered/Not Resolved]
  - Acute respiratory failure [Unknown]
  - Pneumonia [Unknown]
  - Essential hypertension [Unknown]
  - Arrhythmia [Unknown]
  - Tachycardia [Unknown]
  - Hypotension [Unknown]
  - Anaemia [Unknown]
  - Fatigue [Unknown]
  - Dizziness [Unknown]
  - White blood cell disorder [Unknown]
  - Blood disorder [Unknown]
  - Diarrhoea [Unknown]
